FAERS Safety Report 18345955 (Version 1)
Quarter: 2020Q4

REPORT INFORMATION
  Report Type: Spontaneous
  Country: GB (occurrence: GB)
  Receive Date: 20201005
  Receipt Date: 20201005
  Transmission Date: 20210114
  Serious: Yes (Hospitalization, Other)
  Sender: FDA-Public Use
  Company Number: GB-JNJFOC-20200938939

PATIENT
  Age: 62 Year
  Sex: Female
  Weight: 68 kg

DRUGS (2)
  1. STELARA [Suspect]
     Active Substance: USTEKINUMAB
     Indication: PARAPSORIASIS
     Route: 058
     Dates: start: 20010103
  2. BRODALUMAB [Concomitant]
     Active Substance: BRODALUMAB
     Route: 065

REACTIONS (7)
  - Paradoxical drug reaction [Recovering/Resolving]
  - Off label use [Unknown]
  - Autoimmune hepatitis [Recovered/Resolved]
  - Breast cancer metastatic [Unknown]
  - Product use in unapproved indication [Unknown]
  - Dermatitis exfoliative generalised [Unknown]
  - Lymphadenopathy [Unknown]
